FAERS Safety Report 8044468-0 (Version None)
Quarter: 2012Q1

REPORT INFORMATION
  Report Type: 
  Country: None (occurrence: None)
  Receive Date: 20120111
  Receipt Date: 20120111
  Transmission Date: 20120608
  Serious: Yes (Death)
  Sender: FDA-Public Use
  Company Number: None

PATIENT
  Age: 76 Year
  Sex: Female

DRUGS (6)
  1. CYMBALTA [Suspect]
  2. ZYVOX [Suspect]
     Indication: PNEUMONIA STAPHYLOCOCCAL
     Dosage: 600MG 2 X DAY
     Dates: start: 20110718
  3. ZYVOX [Suspect]
     Indication: STAPHYLOCOCCAL INFECTION
     Dosage: 600MG 2 X DAY
     Dates: start: 20110718
  4. ZYVOX [Suspect]
     Indication: PNEUMONIA STAPHYLOCOCCAL
     Dosage: 600MG 2 X DAY
     Dates: start: 20110721
  5. ZYVOX [Suspect]
     Indication: STAPHYLOCOCCAL INFECTION
     Dosage: 600MG 2 X DAY
     Dates: start: 20110721
  6. WELLBUTRIN [Suspect]

REACTIONS (4)
  - PYREXIA [None]
  - PUPILLARY DISORDER [None]
  - NERVOUS SYSTEM DISORDER [None]
  - SEROTONIN SYNDROME [None]
